FAERS Safety Report 5436013-0 (Version None)
Quarter: 2007Q3

REPORT INFORMATION
  Report Type: 
  Country: None (occurrence: None)
  Receive Date: 20070831
  Receipt Date: 20070824
  Transmission Date: 20080115
  Serious: Yes (Life-Threatening, Other)
  Sender: FDA-Public Use
  Company Number: B0391840A

PATIENT
  Age: 33 Year
  Sex: Female
  Weight: 55 kg

DRUGS (3)
  1. BUPROPION HYDROCHLORIDE [Suspect]
     Dosage: 150MG SEE DOSAGE TEXT
     Route: 065
     Dates: start: 20050430, end: 20050703
  2. MICROGYNON 30 [Concomitant]
  3. FLUCONAZOLE [Concomitant]
     Dosage: 150MG PER DAY
     Dates: start: 20050615

REACTIONS (4)
  - BLOOD GLUCOSE INCREASED [None]
  - DIABETES MELLITUS [None]
  - POLYURIA [None]
  - THIRST [None]
